FAERS Safety Report 5864550-3 (Version None)
Quarter: 2008Q3

REPORT INFORMATION
  Report Type: 
  Country: None (occurrence: None)
  Receive Date: 20080829
  Receipt Date: 20080806
  Transmission Date: 20090109
  Serious: No
  Sender: FDA-Public Use
  Company Number: US-ABBOTT-08P-163-0462287-00

PATIENT
  Sex: Male

DRUGS (3)
  1. SIMCOR [Suspect]
     Indication: BLOOD CHOLESTEROL INCREASED
     Dosage: 500/20MG AT BEDTIME
     Route: 048
     Dates: start: 20080615
  2. SIMCOR [Suspect]
     Indication: BLOOD TRIGLYCERIDES
  3. FENOFIBRATE [Concomitant]
     Indication: DRUG USE FOR UNKNOWN INDICATION
     Dosage: 145MG AT BEDTIME
     Route: 048

REACTIONS (2)
  - FLUSHING [None]
  - PRURITUS [None]
